FAERS Safety Report 12528580 (Version 1)
Quarter: 2016Q3

REPORT INFORMATION
  Report Type: Spontaneous
  Country: JP (occurrence: JP)
  Receive Date: 20160705
  Receipt Date: 20160705
  Transmission Date: 20161109
  Serious: Yes (Hospitalization, Other)
  Sender: FDA-Public Use
  Company Number: JP-HQ SPECIALTY-JP-2016INT000427

PATIENT
  Age: 32 Year
  Sex: Male

DRUGS (8)
  1. IFOSFAMIDE. [Suspect]
     Active Substance: IFOSFAMIDE
     Indication: CHORIOCARCINOMA
     Dosage: 2 MG/M2, DAY 10, 12, 14
  2. CISPLATIN. [Suspect]
     Active Substance: CISPLATIN
     Indication: CHORIOCARCINOMA
     Dosage: 120 MG/M2, DAY 1-5
  3. CISPLATIN. [Suspect]
     Active Substance: CISPLATIN
     Dosage: 100 MG/M2, DAY 1
  4. OXALIPLATIN. [Suspect]
     Active Substance: OXALIPLATIN
     Indication: CHORIOCARCINOMA
     Dosage: 130 MG/M2, DAY 10
  5. PACLITAXEL. [Suspect]
     Active Substance: PACLITAXEL
     Indication: CHORIOCARCINOMA
     Dosage: 175 MG/M2, DAY 1M
  6. ETOPOSIDE. [Suspect]
     Active Substance: ETOPOSIDE
     Indication: CHORIOCARCINOMA
     Dosage: 100 MG/M2, DAY 1-5
  7. BLEOMYCIN [Suspect]
     Active Substance: BLEOMYCIN SULFATE
     Dosage: 25 MG/M2, DAY 10-14; CONTINUOUS INFUSION
  8. BLEOMYCIN [Suspect]
     Active Substance: BLEOMYCIN SULFATE
     Indication: CHORIOCARCINOMA
     Dosage: 30 MG/M2, DAY 1

REACTIONS (5)
  - Renal injury [Recovering/Resolving]
  - Malaise [Recovering/Resolving]
  - Hyperuricaemia [Recovering/Resolving]
  - Decreased appetite [Recovering/Resolving]
  - Tumour lysis syndrome [Recovering/Resolving]
